FAERS Safety Report 17362918 (Version 1)
Quarter: 2020Q1

REPORT INFORMATION
  Report Type: Spontaneous
  Country: IT (occurrence: IT)
  Receive Date: 20200203
  Receipt Date: 20200203
  Transmission Date: 20200409
  Serious: Yes (Other)
  Sender: FDA-Public Use
  Company Number: IT-SA-2020SA023105

PATIENT
  Age: 22 Year
  Sex: Female

DRUGS (1)
  1. LEMTRADA [Suspect]
     Active Substance: ALEMTUZUMAB
     Dosage: UNK
     Route: 041
     Dates: start: 2019, end: 2019

REACTIONS (3)
  - Platelet count decreased [Unknown]
  - Immune thrombocytopenic purpura [Unknown]
  - Gingival bleeding [Unknown]
